FAERS Safety Report 4710640-8 (Version None)
Quarter: 2005Q3

REPORT INFORMATION
  Report Type: 
  Country: None (occurrence: None)
  Receive Date: 20050707
  Receipt Date: 20050615
  Transmission Date: 20060218
  Serious: No
  Sender: FDA-Public Use
  Company Number: CA_050508223

PATIENT
  Age: 18 Year
  Sex: Female

DRUGS (2)
  1. STRATTERA [Suspect]
     Indication: ATTENTION DEFICIT/HYPERACTIVITY DISORDER
     Dosage: 25 MG
     Dates: start: 20050425
  2. DEXEDRINE [Concomitant]

REACTIONS (1)
  - OCULAR ICTERUS [None]
